FAERS Safety Report 9642403 (Version 2)
Quarter: 2013Q4

REPORT INFORMATION
  Report Type: Spontaneous
  Country: US (occurrence: US)
  Receive Date: 20131024
  Receipt Date: 20131024
  Transmission Date: 20140711
  Serious: No
  Sender: FDA-Public Use
  Company Number: 2013SP006764

PATIENT
  Age: 78 Year
  Sex: Female
  Weight: 61.24 kg

DRUGS (7)
  1. VANCOMYCIN [Suspect]
     Indication: CLOSTRIDIUM DIFFICILE COLITIS
     Route: 048
     Dates: start: 20130906
  2. VANCOMYCIN [Suspect]
     Indication: CLOSTRIDIUM DIFFICILE COLITIS
     Route: 048
     Dates: start: 201302, end: 20130905
  3. VANCOMYCIN [Suspect]
     Indication: CLOSTRIDIUM DIFFICILE COLITIS
     Route: 048
     Dates: start: 201209, end: 201302
  4. CIPROFLOXACIN [Concomitant]
     Indication: URINARY TRACT INFECTION
     Route: 048
     Dates: start: 201209
  5. CEFUROXIME AXETIL [Concomitant]
     Indication: URINARY TRACT INFECTION
     Route: 048
     Dates: start: 201305
  6. SYNTHROID [Concomitant]
     Indication: THYROID DISORDER
     Route: 048
  7. DOXAZOSIN [Concomitant]
     Indication: HYPERTENSION
     Route: 048
     Dates: start: 201209

REACTIONS (4)
  - Drug ineffective [Not Recovered/Not Resolved]
  - Abdominal discomfort [Not Recovered/Not Resolved]
  - Nausea [Not Recovered/Not Resolved]
  - Diarrhoea [Not Recovered/Not Resolved]
